FAERS Safety Report 5022390-1 (Version None)
Quarter: 2006Q2

REPORT INFORMATION
  Report Type: 
  Country: None (occurrence: None)
  Receive Date: 20060609
  Receipt Date: 20060527
  Transmission Date: 20061013
  Serious: Yes (Hospitalization)
  Sender: FDA-Public Use
  Company Number: US-AMGEN-STX181149

PATIENT
  Sex: Female

DRUGS (1)
  1. ENBREL [Suspect]
     Indication: RHEUMATOID ARTHRITIS
     Route: 058
     Dates: start: 19991101

REACTIONS (5)
  - BLISTER [None]
  - CONDITION AGGRAVATED [None]
  - FATIGUE [None]
  - RHEUMATOID ARTHRITIS [None]
  - STENT PLACEMENT [None]
